FAERS Safety Report 10142718 (Version 2)
Quarter: 2014Q2

REPORT INFORMATION
  Report Type: Report from Study
  Country: FR (occurrence: FR)
  Receive Date: 20140430
  Receipt Date: 20140512
  Transmission Date: 20141212
  Serious: Yes (Hospitalization)
  Sender: FDA-Public Use
  Company Number: FR-ROCHE-1392376

PATIENT
  Sex: Female

DRUGS (3)
  1. RITUXIMAB [Suspect]
     Indication: ANTI-NEUTROPHIL CYTOPLASMIC ANTIBODY POSITIVE VASCULITIS
     Route: 065
     Dates: start: 20131016, end: 20131016
  2. RITUXIMAB [Suspect]
     Route: 065
     Dates: start: 20140116, end: 20140116
  3. PERINDOPRIL [Concomitant]

REACTIONS (2)
  - Pseudomonas bronchitis [Recovered/Resolved]
  - Haemoptysis [Unknown]
